FAERS Safety Report 6136388-3 (Version None)
Quarter: 2009Q1

REPORT INFORMATION
  Report Type: 
  Country: None (occurrence: None)
  Receive Date: 20090325
  Receipt Date: 20090318
  Transmission Date: 20090719
  Serious: Yes (Other)
  Sender: FDA-Public Use
  Company Number: APP200900143

PATIENT
  Age: 78 Year
  Sex: Female
  Weight: 103 kg

DRUGS (1)
  1. HEPARIN SODIUM INJECTION [Suspect]
     Indication: CARDIAC OPERATION
     Dates: start: 20090224, end: 20090224

REACTIONS (1)
  - DRUG INEFFECTIVE [None]
